FAERS Safety Report 5662171-9 (Version None)
Quarter: 2008Q1

REPORT INFORMATION
  Report Type: 
  Country: None (occurrence: None)
  Receive Date: 20080312
  Receipt Date: 20080304
  Transmission Date: 20080703
  Serious: Yes (Death, Life-Threatening, Hospitalization, Other)
  Sender: FDA-Public Use
  Company Number: DE-ABBOTT-08P-062-0439153-00

PATIENT
  Sex: Male

DRUGS (76)
  1. CLARITHROMYCIN [Suspect]
     Indication: INFECTION
     Route: 048
     Dates: start: 20031015
  2. PANTOPRAZOLE SODIUM [Suspect]
     Indication: PROPHYLAXIS AGAINST GASTROINTESTINAL ULCER
     Route: 042
     Dates: start: 20031003, end: 20031014
  3. PANTOPRAZOLE SODIUM [Suspect]
     Route: 048
     Dates: start: 20031016, end: 20031101
  4. DICLOFENAC SODIUM [Suspect]
     Indication: PAIN
     Route: 048
     Dates: start: 20031017, end: 20031018
  5. COLCHICIN [Suspect]
     Indication: PERICARDIAL EFFUSION
     Route: 048
     Dates: start: 20031017, end: 20031018
  6. COLCHICIN [Suspect]
     Route: 048
     Dates: start: 20031020, end: 20031029
  7. CIPROFLOXACIN [Suspect]
     Indication: INFECTION
     Route: 042
     Dates: start: 20031004, end: 20031017
  8. CIPROFLOXACIN [Suspect]
     Route: 042
     Dates: start: 20031026, end: 20031028
  9. PROTAMINE HYDROCHLORIDE [Suspect]
     Indication: INTRAOPERATIVE CARE
     Route: 042
     Dates: start: 20031003, end: 20031003
  10. ROCURONIUM BROMIDE [Suspect]
     Indication: MUSCLE RELAXANT THERAPY
     Route: 042
     Dates: start: 20031003, end: 20031003
  11. FACTOR IX COMPLEX [Suspect]
     Indication: PROCOAGULANT THERAPY
     Route: 042
     Dates: start: 20031003, end: 20031003
  12. CEFAZOLIN SODIUM [Suspect]
     Indication: ANTIBIOTIC PROPHYLAXIS
     Route: 042
     Dates: start: 20031002, end: 20031004
  13. RED BLOOD CELLS [Suspect]
     Indication: BLOOD PRODUCT TRANSFUSION
     Route: 042
     Dates: start: 20031003, end: 20031003
  14. RED BLOOD CELLS [Suspect]
     Indication: INTRAOPERATIVE CARE
     Route: 042
     Dates: start: 20031004, end: 20031004
  15. NITROGLYCERIN [Suspect]
     Indication: CARDIAC FAILURE
     Route: 042
     Dates: start: 20031002, end: 20031004
  16. PROPOFOL [Suspect]
     Indication: SEDATION
     Route: 042
     Dates: start: 20031003, end: 20031005
  17. GFP INFUSION [Suspect]
     Indication: DRUG THERAPY
     Route: 042
     Dates: start: 20031003, end: 20031004
  18. GFP INFUSION [Suspect]
     Route: 042
     Dates: start: 20031006, end: 20031006
  19. EPINEPHRINE [Suspect]
     Indication: INTRAOPERATIVE CARE
     Route: 042
     Dates: start: 20031003, end: 20031009
  20. RINGER'S [Suspect]
     Indication: FLUID REPLACEMENT
     Route: 042
     Dates: start: 20031002, end: 20031010
  21. AMIODARONE HCL [Suspect]
     Indication: CARDIAC FAILURE
     Route: 042
     Dates: start: 20031003, end: 20031011
  22. NOREPINEPHRINE [Suspect]
     Indication: INTRAOPERATIVE CARE
     Route: 042
     Dates: start: 20031003, end: 20031007
  23. NOREPINEPHRINE [Suspect]
     Route: 042
     Dates: start: 20031011, end: 20031011
  24. MILRINONE LACTATE [Suspect]
     Indication: CARDIAC FAILURE
     Route: 042
     Dates: start: 20031003, end: 20031015
  25. SUCRALFATE [Suspect]
     Indication: PROPHYLAXIS AGAINST GASTROINTESTINAL ULCER
     Route: 048
     Dates: start: 20031002, end: 20031015
  26. MAGNESIUM SULFATE [Suspect]
     Indication: DRUG THERAPY
     Route: 042
     Dates: start: 20031002, end: 20031015
  27. ACETYLCYSTEINE [Suspect]
     Indication: SECRETION DISCHARGE
     Route: 042
     Dates: start: 20031002, end: 20031017
  28. ACETYLCYSTEINE [Suspect]
     Route: 055
  29. INSULIN [Suspect]
     Indication: DIABETES MELLITUS
     Route: 042
     Dates: start: 20031003, end: 20031023
  30. PIRITRAMIDE [Suspect]
     Indication: PAIN
     Route: 042
     Dates: start: 20031003, end: 20031015
  31. PIRITRAMIDE [Suspect]
     Route: 042
     Dates: start: 20031029, end: 20031029
  32. HEPARIN SODIUM [Suspect]
     Indication: THROMBOSIS PROPHYLAXIS
     Route: 042
     Dates: start: 20031003, end: 20031101
  33. PIPERACILLIN AND TAZOBACTAM [Suspect]
     Indication: GASTROINTESTINAL DISORDER THERAPY
     Route: 042
     Dates: start: 20031004, end: 20031015
  34. LACTULOSE [Suspect]
     Indication: HEPATIC FAILURE
     Route: 048
     Dates: start: 20031004, end: 20031026
  35. MAGNESIUM BIOMED [Suspect]
     Indication: DRUG THERAPY
     Route: 042
     Dates: start: 20031005, end: 20031005
  36. CLINIMIX [Suspect]
     Indication: NUTRITIONAL SUPPORT
     Route: 042
     Dates: start: 20031005, end: 20031008
  37. AMINO-HEPAR [Suspect]
     Indication: NUTRITIONAL SUPPORT
     Route: 048
     Dates: start: 20031005, end: 20031011
  38. METOCLOPRAMIDE HYDROCHLORIDE [Suspect]
     Indication: VOMITING
     Dosage: AMPOULE
     Route: 042
     Dates: start: 20031005, end: 20031015
  39. DIMETICONE [Suspect]
     Indication: CONSTIPATION
     Route: 048
     Dates: start: 20031005, end: 20031015
  40. DIMETICONE [Suspect]
     Route: 048
     Dates: start: 20031018, end: 20031101
  41. NEOSTIGMINE BROMIDE [Suspect]
     Indication: HYPOTONIA
     Route: 042
     Dates: start: 20031007, end: 20031007
  42. AMANTADINE HCL [Suspect]
     Indication: TRANSIENT PSYCHOSIS
     Route: 048
     Dates: start: 20031007, end: 20031009
  43. AMPHOTERICIN B [Suspect]
     Indication: CANDIDIASIS
     Route: 055
     Dates: start: 20031007, end: 20031015
  44. CARVEDILOL [Suspect]
     Indication: CARDIAC FAILURE
     Route: 048
     Dates: start: 20031008, end: 20031010
  45. CARVEDILOL [Suspect]
     Route: 048
     Dates: start: 20031012, end: 20031101
  46. FLUMAZENIL [Suspect]
     Indication: DRUG THERAPY
     Route: 042
     Dates: start: 20031009, end: 20031009
  47. GENTAMICIN SULFATE [Suspect]
     Indication: EXOPHTHALMOS
     Route: 061
     Dates: start: 20031009, end: 20031024
  48. DEXPANTHENOL [Suspect]
     Indication: EXOPHTHALMOS
     Route: 061
     Dates: start: 20031009, end: 20031101
  49. DEXPANTHENOL [Suspect]
  50. NEBACETIN [Suspect]
     Indication: GASTROINTESTINAL DISORDER THERAPY
     Route: 048
     Dates: start: 20031011, end: 20031101
  51. BLAND DIET [Suspect]
     Indication: NUTRITIONAL SUPPORT
     Route: 048
     Dates: start: 20031012, end: 20031015
  52. HALOPERIDOL [Suspect]
     Indication: RESTLESSNESS
     Route: 042
     Dates: start: 20031014, end: 20031014
  53. LORAZEPAM [Suspect]
     Indication: RESTLESSNESS
     Route: 042
     Dates: start: 20031014, end: 20031014
  54. AMPICILLIN [Suspect]
     Indication: DRUG USE FOR UNKNOWN INDICATION
     Route: 042
     Dates: start: 20031014, end: 20031015
  55. METRONIDAZOLE HCL [Suspect]
     Indication: INFECTION
     Route: 042
     Dates: start: 20031015, end: 20031016
  56. METRONIDAZOLE HCL [Suspect]
     Route: 042
     Dates: start: 20031028, end: 20031101
  57. TPN ELECTROLYTES IN PLASTIC CONTAINER [Suspect]
     Indication: DRUG THERAPY
     Route: 042
     Dates: start: 20031016, end: 20031023
  58. VANCOMYCIN [Suspect]
     Indication: INFLAMMATION
     Route: 042
     Dates: start: 20031017, end: 20031022
  59. PRIMAXIN [Suspect]
     Indication: INFLAMMATION
     Route: 048
     Dates: start: 20031017, end: 20031028
  60. PREDNISOLONE SODIUM SUCCINATE INJ [Suspect]
     Indication: DRUG USE FOR UNKNOWN INDICATION
     Route: 042
     Dates: start: 20031019, end: 20031019
  61. ROFECOXIB [Suspect]
     Indication: PAIN
     Route: 048
     Dates: start: 20031019, end: 20031020
  62. FORTIMEL [Suspect]
     Indication: NUTRITIONAL SUPPORT
     Route: 042
     Dates: start: 20031028, end: 20031101
  63. GELAFUNDIN [Suspect]
     Indication: DRUG THERAPY
     Route: 042
     Dates: start: 20031029, end: 20031029
  64. NUTRI TWIN [Suspect]
     Indication: NUTRITIONAL SUPPORT
     Route: 042
     Dates: start: 20031029, end: 20031101
  65. NUTRI TWIN [Suspect]
  66. ALBUMIN (HUMAN) [Suspect]
     Indication: DRUG THERAPY
     Route: 042
     Dates: start: 20031030, end: 20031030
  67. HETASTARCH IN SODIUM CHLORIDE [Suspect]
     Indication: DRUG THERAPY
     Route: 042
     Dates: start: 20031030, end: 20031030
  68. DOPAMINE HYDROCHLORIDE [Suspect]
     Indication: CARDIOVASCULAR DISORDER
     Route: 042
     Dates: start: 20031030, end: 20031101
  69. INTRALIPID 10% [Suspect]
     Indication: NUTRITIONAL SUPPORT
     Route: 042
     Dates: start: 20031030, end: 20031101
  70. TPN ELECTROLYTES IN PLASTIC CONTAINER [Suspect]
     Indication: DRUG THERAPY
     Route: 042
     Dates: start: 20031030, end: 20031101
  71. SOLUVIT [Suspect]
     Indication: DRUG THERAPY
     Route: 042
     Dates: start: 20031030, end: 20031101
  72. VITALIPID [Suspect]
     Indication: NUTRITIONAL SUPPORT
     Route: 042
     Dates: start: 20031030, end: 20031101
  73. GLUCOSE [Suspect]
     Indication: DRUG THERAPY
     Dosage: 5%
     Route: 042
     Dates: start: 20031003, end: 20031015
  74. GLUCOSE [Suspect]
     Route: 042
     Dates: start: 20031026, end: 20031029
  75. ACETYLCYSTEINE [Suspect]
     Indication: SECRETION DISCHARGE
     Route: 055
     Dates: start: 20031007, end: 20031015
  76. CORNEREGEL AUGENGEL [Suspect]
     Indication: EYE HAEMORRHAGE
     Route: 061
     Dates: start: 20031018, end: 20031024

REACTIONS (3)
  - PYREXIA [None]
  - STEVENS-JOHNSON SYNDROME [None]
  - THERMAL BURN [None]
